FAERS Safety Report 21344993 (Version 2)
Quarter: 2022Q3

REPORT INFORMATION
  Report Type: Report from Study
  Country: JP (occurrence: JP)
  Receive Date: 20220916
  Receipt Date: 20220928
  Transmission Date: 20221026
  Serious: Yes (Hospitalization)
  Sender: FDA-Public Use
  Company Number: JP-ONO-2022JP023006

PATIENT
  Age: 67 Year
  Sex: Male
  Weight: 68.6 kg

DRUGS (13)
  1. BMS-986310 [Suspect]
     Active Substance: BMS-986310
     Indication: Colorectal cancer
     Dosage: ON 19-AUG-2022, ONO-4578 STUDY THERAPY WAS SUSPENDED.
     Route: 048
     Dates: start: 20220330, end: 20220818
  2. BMS-986310 [Suspect]
     Active Substance: BMS-986310
  3. OXALIPLATIN [Suspect]
     Active Substance: OXALIPLATIN
     Indication: Colorectal cancer
     Route: 041
     Dates: start: 20220330
  4. CAPECITABINE [Suspect]
     Active Substance: CAPECITABINE
     Indication: Colorectal cancer
     Route: 048
     Dates: start: 20220330
  5. CAPECITABINE [Suspect]
     Active Substance: CAPECITABINE
     Route: 048
     Dates: start: 20220817, end: 20220817
  6. BEVACIZUMAB [Suspect]
     Active Substance: BEVACIZUMAB
     Indication: Colorectal cancer
     Route: 041
     Dates: start: 20220330
  7. NEXIUM [Concomitant]
     Active Substance: ESOMEPRAZOLE MAGNESIUM
     Indication: Gastritis prophylaxis
     Dosage: 20 MG, PRN
     Route: 048
     Dates: start: 20220406
  8. MAGNESIUM OXIDE [Concomitant]
     Active Substance: MAGNESIUM OXIDE
     Indication: Constipation
     Dosage: 330 MG, PRN
     Route: 048
     Dates: start: 20220406
  9. DOMPERIDONE [Concomitant]
     Active Substance: DOMPERIDONE
     Indication: Prophylaxis of nausea and vomiting
     Dosage: 10 MG, PRN
     Route: 048
     Dates: start: 20220502
  10. RINDERON V [Concomitant]
     Active Substance: BETAMETHASONE VALERATE
     Indication: Palmar-plantar erythrodysaesthesia syndrome
     Dosage: APPROPRIATE AMOUNT, Q12H
     Route: 061
     Dates: start: 20220502
  11. GLYCOSAMINOGLYCANS [Concomitant]
     Active Substance: GLYCOSAMINOGLYCANS
     Indication: Palmar-plantar erythrodysaesthesia syndrome
     Dosage: APPROPRIATE AMOUNT, Q12H
     Route: 061
     Dates: start: 20220502
  12. EFINACONAZOLE [Concomitant]
     Active Substance: EFINACONAZOLE
     Indication: Dermatophytosis of nail
     Dosage: APPROPRIATE AMOUNT, EVERYDAY
     Route: 061
     Dates: start: 20220509
  13. TERBINAFINE HYDROCHLORIDE [Concomitant]
     Active Substance: TERBINAFINE HYDROCHLORIDE
     Indication: Dermatophytosis of nail
     Dosage: APPROPRIATE AMOUNT, EVERYDAY
     Route: 061
     Dates: start: 20220509

REACTIONS (1)
  - Nausea [Recovering/Resolving]

NARRATIVE: CASE EVENT DATE: 20220818
